FAERS Safety Report 5759514-4 (Version None)
Quarter: 2008Q2

REPORT INFORMATION
  Report Type: 
  Country: None (occurrence: None)
  Receive Date: 20080604
  Receipt Date: 20080604
  Transmission Date: 20081010
  Serious: Yes (Life-Threatening, Hospitalization)
  Sender: FDA-Public Use
  Company Number: None

PATIENT
  Age: 81 Year
  Sex: Female
  Weight: 65.7716 kg

DRUGS (1)
  1. DIGOXIN [Suspect]
     Indication: HEART RATE IRREGULAR
     Dosage: 0.25 MG ONE DAILY MOUTH
     Route: 048
     Dates: start: 20080130, end: 20080509

REACTIONS (4)
  - CHEST DISCOMFORT [None]
  - MALAISE [None]
  - NAUSEA [None]
  - VOMITING [None]
